FAERS Safety Report 8600501-6 (Version None)
Quarter: 2012Q3

REPORT INFORMATION
  Report Type: 
  Country: None (occurrence: None)
  Receive Date: 20120808
  Receipt Date: 20120808
  Transmission Date: 20120928
  Serious: Yes (Other)
  Sender: FDA-Public Use
  Company Number: None

PATIENT
  Age: 56 Year
  Sex: Female
  Weight: 86.1834 kg

DRUGS (2)
  1. LOVASTATIN [Suspect]
     Indication: KIDNEY INFECTION
     Dosage: 10MG 1 DAYALY
     Dates: start: 20120618
  2. LOVASTATIN [Suspect]
     Indication: KIDNEY INFECTION
     Dosage: 10MG 1 DAYALY
     Dates: start: 20120619

REACTIONS (1)
  - MUSCLE SPASMS [None]
